FAERS Safety Report 7273171-X (Version None)
Quarter: 2011Q1

REPORT INFORMATION
  Report Type: 
  Country: None (occurrence: None)
  Receive Date: 20110203
  Receipt Date: 20101029
  Transmission Date: 20110831
  Serious: No
  Sender: FDA-Public Use
  Company Number: US-ABBOTT-10P-163-0682737-00

PATIENT
  Sex: Female
  Weight: 47.67 kg

DRUGS (2)
  1. SYNTHROID [Suspect]
     Indication: HYPOTHYROIDISM
     Dates: start: 19720101
  2. SYNTHROID [Suspect]

REACTIONS (5)
  - HYPERVENTILATION [None]
  - COELIAC DISEASE [None]
  - CHEST PAIN [None]
  - FEELING ABNORMAL [None]
  - HYPOTHYROIDISM [None]
